FAERS Safety Report 20513567 (Version 1)
Quarter: 2022Q1

REPORT INFORMATION
  Report Type: Spontaneous
  Country: KR (occurrence: None)
  Receive Date: 20220224
  Receipt Date: 20220224
  Transmission Date: 20220423
  Serious: Yes (Other)
  Sender: FDA-Public Use
  Company Number: 2022A079395

PATIENT
  Age: 51 Year
  Sex: Female

DRUGS (2)
  1. GEFITINIB [Suspect]
     Active Substance: GEFITINIB
     Indication: Chemotherapy
     Route: 048
     Dates: start: 20190217, end: 20210518
  2. SAMCHILCHOONGCHO-JUNG [Concomitant]
     Route: 048
     Dates: start: 20190217, end: 20210518

REACTIONS (2)
  - Malignant neoplasm progression [Unknown]
  - Drug resistance [Unknown]

NARRATIVE: CASE EVENT DATE: 20201101
